FAERS Safety Report 16683995 (Version 2)
Quarter: 2019Q3

REPORT INFORMATION
  Report Type: Spontaneous
  Country: US (occurrence: US)
  Receive Date: 20190808
  Receipt Date: 20190919
  Transmission Date: 20191004
  Serious: No
  Sender: FDA-Public Use
  Company Number: US-009507513-1908USA003205

PATIENT
  Age: 18 Year
  Sex: Female
  Weight: 49.43 kg

DRUGS (1)
  1. NEXPLANON [Suspect]
     Active Substance: ETONOGESTREL
     Dosage: THE IMPLANT
     Route: 059
     Dates: start: 201811, end: 20190814

REACTIONS (5)
  - Complication associated with device [Recovered/Resolved]
  - Mood altered [Unknown]
  - Dysfunctional uterine bleeding [Unknown]
  - Implant site oedema [Recovered/Resolved]
  - Complication of device removal [Recovered/Resolved]

NARRATIVE: CASE EVENT DATE: 2019
